FAERS Safety Report 7064598-X (Version None)
Quarter: 2010Q4

REPORT INFORMATION
  Report Type: 
  Country: None (occurrence: None)
  Receive Date: 20101019
  Receipt Date: 20101006
  Transmission Date: 20110411
  Serious: Yes (Other)
  Sender: FDA-Public Use
  Company Number: TCI2010A04342

PATIENT

DRUGS (1)
  1. ROZEREM [Suspect]
     Indication: INSOMNIA
     Dosage: 8 MG (8 MG,1 IN 1 D) PER ORAL
     Route: 048
     Dates: start: 20100928, end: 20100930

REACTIONS (5)
  - ABASIA [None]
  - BLOOD CREATINE PHOSPHOKINASE INCREASED [None]
  - HYPOAESTHESIA [None]
  - INSOMNIA [None]
  - RHABDOMYOLYSIS [None]
